FAERS Safety Report 7212222-5 (Version None)
Quarter: 2010Q4

REPORT INFORMATION
  Report Type: 
  Country: None (occurrence: None)
  Receive Date: 20101229
  Receipt Date: 20101214
  Transmission Date: 20110411
  Serious: Yes (Other)
  Sender: FDA-Public Use
  Company Number: 012453

PATIENT
  Age: 62 Year

DRUGS (2)
  1. BUSULFEX [Suspect]
     Indication: STEM CELL TRANSPLANT
  2. FUDARABINE (FUDARABINE) [Concomitant]

REACTIONS (2)
  - RECURRENT CANCER [None]
  - REFRACTORY ANAEMIA WITH AN EXCESS OF BLASTS [None]
